FAERS Safety Report 8046049-1 (Version None)
Quarter: 2012Q1

REPORT INFORMATION
  Report Type: 
  Country: None (occurrence: None)
  Receive Date: 20120113
  Receipt Date: 20120110
  Transmission Date: 20120608
  Serious: Yes (Hospitalization, Other)
  Sender: FDA-Public Use
  Company Number: NZ-ELI_LILLY_AND_COMPANY-NZ201107006324

PATIENT
  Sex: Female
  Weight: 70 kg

DRUGS (2)
  1. HUMALOG [Suspect]
     Dosage: 45 U, UNKNOWN
  2. HUMALOG MIX 75/25 [Suspect]
     Indication: DIABETES MELLITUS
     Dosage: 30 IU, BID
     Route: 058
     Dates: start: 20090502

REACTIONS (6)
  - DELAYED ENGRAFTMENT [None]
  - HYPOGLYCAEMIA [None]
  - ADENOID CYSTIC CARCINOMA [None]
  - WRONG DRUG ADMINISTERED [None]
  - DRUG DISPENSING ERROR [None]
  - BLOOD GLUCOSE INCREASED [None]
